FAERS Safety Report 8177234-6 (Version None)
Quarter: 2012Q1

REPORT INFORMATION
  Report Type: 
  Country: None (occurrence: None)
  Receive Date: 20120301
  Receipt Date: 20120221
  Transmission Date: 20120608
  Serious: Yes (Hospitalization)
  Sender: FDA-Public Use
  Company Number: US-ELI_LILLY_AND_COMPANY-US201202006430

PATIENT
  Sex: Female

DRUGS (11)
  1. AMBIEN [Concomitant]
  2. PREDNISONE [Concomitant]
  3. CARDIZEM CD [Concomitant]
  4. ADCIRCA [Suspect]
     Indication: PULMONARY ARTERIAL HYPERTENSION
     Dosage: 20 MG, UNK
     Dates: start: 20120215
  5. DIAZEPAM [Concomitant]
  6. HYDROCODONE BITARTRATE AND ACETAMINOPHEN [Concomitant]
  7. DIJEX [Concomitant]
  8. DEXLANSOPRAZOLE [Concomitant]
     Dosage: 60 MG, UNK
  9. AZITHROMYCIN [Concomitant]
  10. BUSPAR [Concomitant]
  11. SAVELLA [Concomitant]

REACTIONS (1)
  - HOSPITALISATION [None]
